FAERS Safety Report 6718203-X (Version None)
Quarter: 2010Q2

REPORT INFORMATION
  Report Type: 
  Country: None (occurrence: None)
  Receive Date: 20100510
  Receipt Date: 20100501
  Transmission Date: 20101027
  Serious: Yes (Other)
  Sender: FDA-Public Use
  Company Number: US-PFIZER INC-2010055652

PATIENT
  Sex: Male
  Weight: 91 kg

DRUGS (7)
  1. GABAPENTIN [Suspect]
     Indication: BACK PAIN
     Dosage: 300 MG, 1X/DAY
     Route: 048
     Dates: start: 20090901
  2. GABAPENTIN [Suspect]
     Dosage: 600 MG, 1X/DAY
     Dates: start: 20090101
  3. GABAPENTIN [Suspect]
     Dosage: 900 MG, 1X/DAY
     Dates: start: 20090101
  4. OXYCODONE [Concomitant]
     Dosage: UNK
  5. TRAMADOL [Concomitant]
     Dosage: UNK
  6. HYDROCHLOROTHIAZIDE [Concomitant]
     Indication: HYPERTENSION
     Dosage: 25 MG, UNK
     Route: 048
  7. METOPROLOL [Concomitant]
     Indication: HYPERTENSION
     Dosage: 50 MG, UNK

REACTIONS (4)
  - BACK PAIN [None]
  - BLOOD TRIGLYCERIDES INCREASED [None]
  - CARPAL TUNNEL SYNDROME [None]
  - OEDEMA PERIPHERAL [None]
